FAERS Safety Report 4290337-1 (Version None)
Quarter: 2004Q1

REPORT INFORMATION
  Report Type: 
  Country: None (occurrence: None)
  Receive Date: 20040209
  Receipt Date: 20040128
  Transmission Date: 20041129
  Serious: Yes (Other)
  Sender: FDA-Public Use
  Company Number: NSADSS2003004661

PATIENT
  Age: 76 Year
  Sex: Female
  Weight: 53.5244 kg

DRUGS (22)
  1. REMICADE [Suspect]
     Indication: RHEUMATOID ARTHRITIS
     Dosage: 1 IN 1 AS NECESSARY, INTRAVENOUS
     Route: 042
     Dates: start: 20010701, end: 20010701
  2. REMICADE [Suspect]
     Indication: RHEUMATOID ARTHRITIS
     Dosage: 1 IN 1 AS NECESSARY, INTRAVENOUS
     Route: 042
     Dates: start: 20010712, end: 20010712
  3. REMICADE [Suspect]
     Indication: RHEUMATOID ARTHRITIS
     Dosage: 1 IN 1 AS NECESSARY, INTRAVENOUS
     Route: 042
     Dates: start: 20010726, end: 20010726
  4. REMICADE [Suspect]
     Indication: RHEUMATOID ARTHRITIS
     Dosage: 1 IN 1 AS NECESSARY, INTRAVENOUS
     Route: 042
     Dates: start: 20011023, end: 20011023
  5. REMICADE [Suspect]
     Indication: RHEUMATOID ARTHRITIS
     Dosage: 1 IN 1 AS NECESSARY, INTRAVENOUS
     Route: 042
     Dates: start: 20020312, end: 20020312
  6. REMICADE [Suspect]
     Indication: RHEUMATOID ARTHRITIS
     Dosage: 1 IN 1 AS NECESSARY, INTRAVENOUS
     Route: 042
     Dates: start: 20021104, end: 20021104
  7. REMICADE [Suspect]
     Indication: RHEUMATOID ARTHRITIS
     Dosage: 1 IN 1 AS NECESSARY, INTRAVENOUS
     Route: 042
     Dates: start: 20021118, end: 20021118
  8. REMICADE [Suspect]
     Indication: RHEUMATOID ARTHRITIS
     Dosage: 1 IN 1 AS NECESSARY, INTRAVENOUS
     Route: 042
     Dates: start: 20010828
  9. XALATAN  (LATANOPROST) DROPS [Concomitant]
  10. ASPIRIN [Concomitant]
  11. PREDNISONE [Concomitant]
  12. REMINYL [Concomitant]
  13. TOPROL-XL [Concomitant]
  14. LASIX [Concomitant]
  15. MONOPRIL [Concomitant]
  16. POTASSIUM [Concomitant]
  17. PREMARIN [Concomitant]
  18. VITAMIN E [Concomitant]
  19. ELAVIL [Concomitant]
  20. HYDROXYCHLOROQUINE [Concomitant]
  21. METHOTREXATE [Concomitant]
  22. LEFLUNOMIDE [Concomitant]

REACTIONS (5)
  - BORDERLINE LEPROSY [None]
  - DIZZINESS [None]
  - TYPE I HYPERSENSITIVITY [None]
  - VASCULITIS [None]
  - VERTIGO [None]
